FAERS Safety Report 8839449 (Version 1)
Quarter: 2012Q4

REPORT INFORMATION
  Report Type: Spontaneous
  Country: US (occurrence: None)
  Receive Date: 20121012
  Receipt Date: 20121012
  Transmission Date: 20130627
  Serious: Yes (Other)
  Sender: FDA-Public Use
  Company Number: None

PATIENT
  Age: 31 Year
  Sex: Female
  Weight: 72.58 kg

DRUGS (2)
  1. CYMBALTA [Suspect]
     Indication: FIBROMYALGIA
     Dosage: 60mg Once a day po
     Route: 048
     Dates: start: 20120627, end: 20121001
  2. CYMBALTA [Suspect]
     Indication: DEPRESSION
     Dosage: 60mg Once a day po
     Route: 048
     Dates: start: 20120627, end: 20121001

REACTIONS (9)
  - Memory impairment [None]
  - Aggression [None]
  - Crying [None]
  - Dizziness [None]
  - Nausea [None]
  - Pruritus [None]
  - Feeling abnormal [None]
  - Eye pain [None]
  - Paraesthesia [None]
